FAERS Safety Report 16265972 (Version 4)
Quarter: 2019Q2

REPORT INFORMATION
  Report Type: Spontaneous
  Country: ES (occurrence: ES)
  Receive Date: 20190502
  Receipt Date: 20190521
  Transmission Date: 20190711
  Serious: Yes (Other)
  Sender: FDA-Public Use
  Company Number: ES-TEVA-2019-ES-1043676

PATIENT
  Age: 71 Year
  Sex: Female

DRUGS (4)
  1. OXALIPLATIN. [Suspect]
     Active Substance: OXALIPLATIN
     Indication: CARCINOID TUMOUR OF THE PANCREAS
     Dosage: FOLFIRINOX REGIMEN
     Route: 065
  2. FLUOROURACIL. [Suspect]
     Active Substance: FLUOROURACIL
     Indication: CARCINOID TUMOUR OF THE PANCREAS
     Dosage: FOLFIRINOX REGIMEN
     Route: 065
  3. LEUCOVORIN CALCIUM. [Suspect]
     Active Substance: LEUCOVORIN CALCIUM
     Indication: CARCINOID TUMOUR OF THE PANCREAS
     Dosage: FOLFIRINOX REGIMEN
     Route: 065
  4. IRINOTECAN [Suspect]
     Active Substance: IRINOTECAN
     Indication: CARCINOID TUMOUR OF THE PANCREAS
     Dosage: FOLFIRINOX REGIMEN
     Route: 065

REACTIONS (2)
  - Neutropenia [Unknown]
  - Enteritis [Recovered/Resolved]
